FAERS Safety Report 9313132 (Version 1)
Quarter: 2013Q2

REPORT INFORMATION
  Report Type: Spontaneous
  Country: US (occurrence: US)
  Receive Date: 20130528
  Receipt Date: 20130528
  Transmission Date: 20140414
  Serious: No
  Sender: FDA-Public Use
  Company Number: US-ABBOTT-13P-163-1058857-00

PATIENT
  Sex: Male

DRUGS (2)
  1. ANDROGEL 1.62% [Suspect]
     Indication: ANDROGEN REPLACEMENT THERAPY
     Dates: start: 201301
  2. ANDROGEL 1% [Suspect]
     Indication: ANDROGEN REPLACEMENT THERAPY
     Dates: end: 201301

REACTIONS (1)
  - Off label use [Unknown]
